FAERS Safety Report 11140269 (Version 1)
Quarter: 2015Q2

REPORT INFORMATION
  Report Type: Spontaneous
  Country: TR (occurrence: TR)
  Receive Date: 20150527
  Receipt Date: 20150527
  Transmission Date: 20150821
  Serious: Yes (Other)
  Sender: FDA-Public Use
  Company Number: TR-WATSON-2015-10152

PATIENT
  Age: 30 Year
  Sex: Male

DRUGS (3)
  1. ETODOLAC (WATSON LABORATORIES) [Suspect]
     Active Substance: ETODOLAC
     Indication: HEADACHE
     Dosage: UNK
     Route: 065
  2. PARACETAMOL (UNKNOWN) [Suspect]
     Active Substance: ACETAMINOPHEN
     Indication: HEADACHE
     Dosage: UNK
     Route: 065
  3. FLURBIPROFEN. [Suspect]
     Active Substance: FLURBIPROFEN
     Indication: HEADACHE
     Dosage: UNK
     Route: 065

REACTIONS (3)
  - Drug eruption [Recovering/Resolving]
  - Angioedema [Unknown]
  - Urticaria [Unknown]
